FAERS Safety Report 4861127-3 (Version None)
Quarter: 2005Q4

REPORT INFORMATION
  Report Type: 
  Country: None (occurrence: None)
  Receive Date: 20051220
  Receipt Date: 20050922
  Transmission Date: 20060501
  Serious: Yes (Disabling)
  Sender: FDA-Public Use
  Company Number: US-SANOFI-SYNTHELABO-D01200506701

PATIENT
  Sex: Male
  Weight: 102.1 kg

DRUGS (6)
  1. CLOPIDOGREL [Suspect]
     Indication: ATRIAL FIBRILLATION
     Route: 048
     Dates: start: 20040415
  2. CLOPIDOGREL [Suspect]
     Route: 048
     Dates: start: 20050804
  3. IRBESARTAN/ PLACEBO [Suspect]
     Indication: BLOOD PRESSURE DECREASED
     Dosage: 150 MG/DAY FOR 2 WEEKS FOLLOWING BY 300 MG/DAY
     Route: 048
     Dates: start: 20040415
  4. ASPIRIN [Concomitant]
     Indication: ATRIAL FIBRILLATION
     Dosage: 81 MG
     Route: 048
     Dates: start: 20040415
  5. ASPIRIN [Concomitant]
     Dosage: 81 MG
     Route: 048
     Dates: start: 20050804
  6. PRAVACHOL [Concomitant]
     Dosage: 40 MG
     Route: 065

REACTIONS (6)
  - ECCHYMOSIS [None]
  - FALL [None]
  - HAEMATOMA [None]
  - HAEMORRHAGE [None]
  - OEDEMA PERIPHERAL [None]
  - PAIN [None]
